FAERS Safety Report 9915489 (Version 1)
Quarter: 2014Q1

REPORT INFORMATION
  Report Type: Report from Study
  Country: FR (occurrence: FR)
  Receive Date: 20140221
  Receipt Date: 20140221
  Transmission Date: 20141002
  Serious: Yes (Hospitalization)
  Sender: FDA-Public Use
  Company Number: FR-ROCHE-1347351

PATIENT
  Sex: Female

DRUGS (10)
  1. RITUXIMAB [Suspect]
     Indication: RHEUMATOID ARTHRITIS
     Dosage: DAY1
     Route: 041
     Dates: start: 20080722
  2. RITUXIMAB [Suspect]
     Dosage: DAY 15
     Route: 041
     Dates: start: 20080804
  3. RITUXIMAB [Suspect]
     Dosage: DAY1
     Route: 041
     Dates: start: 20091214
  4. RITUXIMAB [Suspect]
     Dosage: DAY 15
     Route: 041
     Dates: start: 20091231
  5. RITUXIMAB [Suspect]
     Dosage: DAY1
     Route: 041
     Dates: start: 20110816
  6. RITUXIMAB [Suspect]
     Dosage: DAY 15
     Route: 041
     Dates: start: 20110905
  7. CORTANCYL [Concomitant]
     Route: 065
     Dates: start: 20080722
  8. CORTANCYL [Concomitant]
     Route: 065
     Dates: start: 20080804
  9. CORTANCYL [Concomitant]
     Route: 065
  10. CORTANCYL [Concomitant]
     Route: 065

REACTIONS (8)
  - Hypercalcaemia [Not Recovered/Not Resolved]
  - Hyperparathyroidism [Not Recovered/Not Resolved]
  - Escherichia urinary tract infection [Not Recovered/Not Resolved]
  - Bronchitis [Recovered/Resolved]
  - Urinary tract infection [Recovered/Resolved]
  - Asthenia [Not Recovered/Not Resolved]
  - Depression [Not Recovered/Not Resolved]
  - Vaginal discharge [Not Recovered/Not Resolved]
